FAERS Safety Report 19006280 (Version 1)
Quarter: 2021Q1

REPORT INFORMATION
  Report Type: Spontaneous
  Country: DE (occurrence: DE)
  Receive Date: 20210315
  Receipt Date: 20210315
  Transmission Date: 20210420
  Serious: Yes (Life-Threatening, Hospitalization, Other)
  Sender: FDA-Public Use
  Company Number: DE-AUROBINDO-AUR-APL-2021-009782

PATIENT
  Age: 69 Year
  Sex: Male

DRUGS (11)
  1. DOXAZOSIN [Concomitant]
     Active Substance: DOXAZOSIN MESYLATE
     Indication: PRODUCT USED FOR UNKNOWN INDICATION
     Dosage: 4 MILLIGRAM, ONCE A DAY (1?0?0?0)
     Route: 065
  2. EPLERENONE. [Concomitant]
     Active Substance: EPLERENONE
     Indication: PRODUCT USED FOR UNKNOWN INDICATION
     Dosage: 25 MILLIGRAM, ONCE A DAY (50 MG, 0.5?0?0?0)
     Route: 065
  3. URAPIDIL [Concomitant]
     Active Substance: URAPIDIL
     Indication: PRODUCT USED FOR UNKNOWN INDICATION
     Dosage: 30 MILLIGRAM, 3 TIMES A DAY (1?1?1?0)
     Route: 065
  4. METAMIZOLE [Concomitant]
     Active Substance: METAMIZOLE
     Indication: PRODUCT USED FOR UNKNOWN INDICATION
     Dosage: 500 MILLIGRAM, AS NECESSARY
     Route: 065
  5. PANTOPRAZOLE [Concomitant]
     Active Substance: PANTOPRAZOLE
     Indication: PRODUCT USED FOR UNKNOWN INDICATION
     Dosage: 40 MILLIGRAM, ONCE A DAY (0?0?1?0)
     Route: 065
  6. EXFORGE HCT [Concomitant]
     Active Substance: AMLODIPINE BESYLATE\HYDROCHLOROTHIAZIDE\VALSARTAN
     Indication: PRODUCT USED FOR UNKNOWN INDICATION
     Dosage: 1 DOSAGE FORM, ONCE A DAY (10|320|25 MG, 1?0?0?0)
     Route: 065
  7. SITAGLIPTIN [Concomitant]
     Active Substance: SITAGLIPTIN
     Indication: PRODUCT USED FOR UNKNOWN INDICATION
     Dosage: 50 MILLIGRAM, ONCE A DAY (1?0?0?0)
     Route: 065
  8. SIMVASTATIN. [Concomitant]
     Active Substance: SIMVASTATIN
     Indication: PRODUCT USED FOR UNKNOWN INDICATION
     Dosage: 40 MILLIGRAM, ONCE A DAY (0?0?1?0)
     Route: 065
  9. ASPIRIN. [Concomitant]
     Active Substance: ASPIRIN
     Indication: PRODUCT USED FOR UNKNOWN INDICATION
     Dosage: 100 MILLIGRAM, ONCE A DAY (1?0?0?0)
     Route: 065
  10. BISOPROLOL FILM?COATED TABLETS [Suspect]
     Active Substance: BISOPROLOL
     Indication: PRODUCT USED FOR UNKNOWN INDICATION
     Dosage: 5 MILLIGRAM, ONCE A DAY (0?1?0?0)
     Route: 065
  11. TORASEMIDE [Concomitant]
     Active Substance: TORSEMIDE
     Indication: PRODUCT USED FOR UNKNOWN INDICATION
     Dosage: 10 MILLIGRAM, ONCE A DAY (1?0?0?0)
     Route: 065

REACTIONS (3)
  - Impaired healing [Unknown]
  - Gangrene [Unknown]
  - Condition aggravated [Unknown]
